FAERS Safety Report 16327476 (Version 1)
Quarter: 2019Q2

REPORT INFORMATION
  Report Type: Spontaneous
  Country: MX (occurrence: MX)
  Receive Date: 20190517
  Receipt Date: 20190517
  Transmission Date: 20190711
  Serious: Yes (Other)
  Sender: FDA-Public Use
  Company Number: MX-ANIPHARMA-2019-MX-000013

PATIENT
  Age: 56 Year
  Sex: Male
  Weight: 78 kg

DRUGS (2)
  1. CANDESARTAN CILEXETIL AND HYDROCHLOROTHIAZIDE [Suspect]
     Active Substance: CANDESARTAN CILEXETIL\HYDROCHLOROTHIAZIDE
     Indication: HYPERTENSION
     Dosage: 8 MG QD
     Route: 048
     Dates: start: 2009
  2. CARDURA [Concomitant]
     Active Substance: DOXAZOSIN MESYLATE
     Dosage: 1 DF DAILY
     Route: 048
     Dates: start: 201901

REACTIONS (1)
  - Prostatitis [Unknown]

NARRATIVE: CASE EVENT DATE: 2014
